FAERS Safety Report 17217837 (Version 1)
Quarter: 2019Q4

REPORT INFORMATION
  Report Type: Spontaneous
  Country: US (occurrence: US)
  Receive Date: 20191207
  Receipt Date: 20191207
  Transmission Date: 20200122
  Serious: Yes (Death)
  Sender: FDA-Public Use
  Company Number: None

PATIENT
  Age: 75 Year
  Sex: Female

DRUGS (2)
  1. ENTECAVIR. [Suspect]
     Active Substance: ENTECAVIR
     Indication: HEPATITIS VIRAL
     Route: 048
     Dates: start: 20171121
  2. ENTECAVIR. [Suspect]
     Active Substance: ENTECAVIR
     Indication: HYPERGAMMAGLOBULINAEMIA
     Route: 048
     Dates: start: 20171121

REACTIONS (1)
  - Hepatic cancer [None]

NARRATIVE: CASE EVENT DATE: 20191027
